FAERS Safety Report 9116761 (Version 1)
Quarter: 2013Q1

REPORT INFORMATION
  Report Type: Spontaneous
  Country: US (occurrence: US)
  Receive Date: 20130225
  Receipt Date: 20130225
  Transmission Date: 20140127
  Serious: No
  Sender: FDA-Public Use
  Company Number: US-ENDO PHARMACEUTICALS INC.-FORT20110012

PATIENT
  Age: 39 Year
  Sex: Male
  Weight: 136.2 kg

DRUGS (2)
  1. FORTESTA [Suspect]
     Indication: HYPOGONADISM
     Route: 061
     Dates: start: 20110401, end: 201104
  2. NEXIUM [Concomitant]
     Indication: GASTROOESOPHAGEAL REFLUX DISEASE

REACTIONS (3)
  - Gait disturbance [Unknown]
  - Application site inflammation [Unknown]
  - Application site rash [Recovered/Resolved]
